FAERS Safety Report 11024756 (Version 1)
Quarter: 2015Q2

REPORT INFORMATION
  Report Type: Spontaneous
  Country: US (occurrence: None)
  Receive Date: 20150413
  Receipt Date: 20150413
  Transmission Date: 20150821
  Serious: No
  Sender: FDA-Public Use
  Company Number: None

PATIENT

DRUGS (2)
  1. HEPARIN SOD. SOLUTION 25,000 UNITS/500 ML HEPARIN SODIUM [Suspect]
     Active Substance: HEPARIN SODIUM
     Dosage: INJECTABLE ?INJECTION ?IV BAG ?500 ML
     Route: 042
  2. HEPARIN [Suspect]
     Active Substance: HEPARIN SODIUM
     Dosage: INJECTABLE ?INJECTION?2 UNIT/ML?IV BAG?500 ML
     Route: 042

REACTIONS (4)
  - Product packaging issue [None]
  - Product packaging confusion [None]
  - Drug dispensing error [None]
  - Product quality issue [None]
